FAERS Safety Report 5823509-2 (Version None)
Quarter: 2008Q3

REPORT INFORMATION
  Report Type: 
  Country: None (occurrence: None)
  Receive Date: 20080725
  Receipt Date: 20080715
  Transmission Date: 20090109
  Serious: Yes (Hospitalization)
  Sender: FDA-Public Use
  Company Number: ES-GILEAD-2008-0017338

PATIENT
  Age: 46 Year
  Sex: Female

DRUGS (5)
  1. TRUVADA [Suspect]
     Indication: HIV INFECTION
     Route: 048
     Dates: start: 20080513
  2. SUSTIVA [Suspect]
     Indication: HIV INFECTION
     Route: 048
     Dates: start: 20080513, end: 20080603
  3. DARAPRIM [Suspect]
     Indication: CEREBRAL TOXOPLASMOSIS
     Route: 048
     Dates: start: 20080402, end: 20080603
  4. SULFADIAZINE [Suspect]
     Indication: CEREBRAL TOXOPLASMOSIS
     Route: 048
     Dates: start: 20080402, end: 20080528
  5. DEXAMETHASONE [Concomitant]
     Indication: CEREBRAL TOXOPLASMOSIS
     Route: 042
     Dates: start: 20080402

REACTIONS (1)
  - AGRANULOCYTOSIS [None]
